FAERS Safety Report 6668473-1 (Version None)
Quarter: 2010Q2

REPORT INFORMATION
  Report Type: 
  Country: None (occurrence: None)
  Receive Date: 20100406
  Receipt Date: 20100329
  Transmission Date: 20101027
  Serious: Yes (Other)
  Sender: FDA-Public Use
  Company Number: PHHY2010DE08999

PATIENT
  Sex: Male
  Weight: 62 kg

DRUGS (1)
  1. EXELON [Suspect]
     Dosage: 4.6 MG PER 24 HOURS
     Route: 062
     Dates: start: 20091027, end: 20091201

REACTIONS (3)
  - DERMATITIS BULLOUS [None]
  - ERYTHEMA [None]
  - PRURITUS [None]
